FAERS Safety Report 15544952 (Version 1)
Quarter: 2018Q4

REPORT INFORMATION
  Report Type: Spontaneous
  Country: ES (occurrence: ES)
  Receive Date: 20181024
  Receipt Date: 20181024
  Transmission Date: 20190205
  Serious: Yes (Hospitalization)
  Sender: FDA-Public Use
  Company Number: ES-009507513-1810ESP007121

PATIENT
  Age: 71 Year
  Sex: Male

DRUGS (3)
  1. EZETROL [Suspect]
     Active Substance: EZETIMIBE
     Route: 048
     Dates: start: 2006, end: 20060712
  2. AVANDIA [Suspect]
     Active Substance: ROSIGLITAZONE MALEATE
     Route: 048
     Dates: start: 2006, end: 20060712
  3. ALDOLEO [Suspect]
     Active Substance: CHLORTHALIDONE\SPIRONOLACTONE
     Route: 048
     Dates: start: 2006, end: 20060712

REACTIONS (2)
  - Hyperkalaemia [Recovered/Resolved]
  - Oedema [Recovered/Resolved]

NARRATIVE: CASE EVENT DATE: 20060710
